FAERS Safety Report 13526657 (Version 6)
Quarter: 2017Q2

REPORT INFORMATION
  Report Type: Spontaneous
  Country: US (occurrence: US)
  Receive Date: 20170509
  Receipt Date: 20170626
  Transmission Date: 20170830
  Serious: No
  Sender: FDA-Public Use
  Company Number: PHHY2017US067681

PATIENT
  Sex: Female

DRUGS (1)
  1. DICLOFENAC [Suspect]
     Active Substance: DICLOFENAC
     Indication: MUSCLE STRAIN
     Dosage: 50 MG (BID, PRN)
     Route: 048
     Dates: start: 20140910, end: 20140912

REACTIONS (2)
  - Drug hypersensitivity [Unknown]
  - Insomnia [Unknown]
